FAERS Safety Report 4910260-6 (Version None)
Quarter: 2006Q1

REPORT INFORMATION
  Report Type: 
  Country: None (occurrence: None)
  Receive Date: 20060209
  Receipt Date: 20060201
  Transmission Date: 20060701
  Serious: Yes (Death)
  Sender: FDA-Public Use
  Company Number: 2005128869

PATIENT
  Age: 38 Year
  Sex: Male

DRUGS (2)
  1. NEURONTIN [Suspect]
     Indication: NEURALGIA
     Dates: start: 20020801
  2. FENTANYL [Suspect]
     Indication: ILL-DEFINED DISORDER

REACTIONS (6)
  - ARRHYTHMIA [None]
  - COMPLETED SUICIDE [None]
  - DRUG INEFFECTIVE [None]
  - OVERDOSE [None]
  - RESPIRATORY DEPRESSION [None]
  - RESPIRATORY FAILURE [None]
